FAERS Safety Report 13950409 (Version 1)
Quarter: 2017Q3

REPORT INFORMATION
  Report Type: Spontaneous
  Country: US (occurrence: US)
  Receive Date: 20170908
  Receipt Date: 20170908
  Transmission Date: 20171128
  Serious: No
  Sender: FDA-Public Use
  Company Number: US-ROCHE-1131270

PATIENT
  Sex: Female

DRUGS (8)
  1. RITUXAN [Suspect]
     Active Substance: RITUXIMAB
     Indication: DIFFUSE LARGE B-CELL LYMPHOMA
     Route: 065
     Dates: start: 19990907
  2. ACETAMINOPHEN. [Concomitant]
     Active Substance: ACETAMINOPHEN
     Route: 048
     Dates: start: 19990914
  3. RITUXAN [Suspect]
     Active Substance: RITUXIMAB
     Route: 065
     Dates: start: 19990921
  4. DIPHENHYDRAMINE NOS [Concomitant]
     Route: 042
     Dates: start: 19990914
  5. ACETAMINOPHEN. [Concomitant]
     Active Substance: ACETAMINOPHEN
     Route: 048
     Dates: start: 19990928
  6. RITUXAN [Suspect]
     Active Substance: RITUXIMAB
     Route: 042
     Dates: start: 19990914
  7. DIPHENHYDRAMINE NOS [Concomitant]
     Route: 042
     Dates: start: 19990928
  8. RITUXAN [Suspect]
     Active Substance: RITUXIMAB
     Route: 042
     Dates: start: 19980928

REACTIONS (2)
  - Fatigue [Unknown]
  - Decreased activity [Unknown]
